FAERS Safety Report 16196169 (Version 2)
Quarter: 2019Q2

REPORT INFORMATION
  Report Type: Spontaneous
  Country: IN (occurrence: IN)
  Receive Date: 20190415
  Receipt Date: 20190502
  Transmission Date: 20190711
  Serious: Yes (Other)
  Sender: FDA-Public Use
  Company Number: IN-LUPIN PHARMACEUTICALS INC.-2019-02247

PATIENT
  Age: 19 Year
  Sex: Male

DRUGS (3)
  1. OLANZAPINE. [Suspect]
     Active Substance: OLANZAPINE
     Indication: EXTRAPYRAMIDAL DISORDER
     Dosage: 20 MILLIGRAM, UNK
     Route: 065
  2. LITHIUM. [Suspect]
     Active Substance: LITHIUM
     Indication: EXTRAPYRAMIDAL DISORDER
     Dosage: 1200 MILLIGRAM, UNK
     Route: 065
  3. QUETIAPINE FUMARATE. [Suspect]
     Active Substance: QUETIAPINE FUMARATE
     Indication: MANIA
     Dosage: 700 MILLIGRAM, UNK
     Route: 065

REACTIONS (3)
  - Electrocardiogram QT prolonged [Unknown]
  - Extrapyramidal disorder [Recovering/Resolving]
  - Drug ineffective [Unknown]
